FAERS Safety Report 5202856-1 (Version None)
Quarter: 2006Q4

REPORT INFORMATION
  Report Type: 
  Country: None (occurrence: None)
  Receive Date: 20061016
  Receipt Date: 20060914
  Transmission Date: 20070319
  Serious: No
  Sender: FDA-Public Use
  Company Number: 2006SP003290

PATIENT
  Age: 43 Year
  Sex: Female
  Weight: 68.0396 kg

DRUGS (3)
  1. LUNESTA [Suspect]
     Indication: INSOMNIA
     Dosage: SEE IMAGE
     Dates: start: 20050101
  2. LEXAPRO [Concomitant]
  3. DETROL [Concomitant]

REACTIONS (1)
  - INSOMNIA [None]
